FAERS Safety Report 17020969 (Version 2)
Quarter: 2020Q1

REPORT INFORMATION
  Report Type: Spontaneous
  Country: GB (occurrence: GB)
  Receive Date: 20191112
  Receipt Date: 20200207
  Transmission Date: 20200409
  Serious: Yes (Other)
  Sender: FDA-Public Use
  Company Number: GB-GLAXOSMITHKLINE-GB2019TSO203568

PATIENT

DRUGS (2)
  1. ZEJULA [Suspect]
     Active Substance: NIRAPARIB
     Indication: PRODUCT USED FOR UNKNOWN INDICATION
     Dosage: 200 MG
     Dates: start: 20190912, end: 20191127
  2. ZEJULA [Suspect]
     Active Substance: NIRAPARIB
     Dosage: 100 UNK

REACTIONS (9)
  - Renal failure [Unknown]
  - Dehydration [Unknown]
  - Atrial fibrillation [Unknown]
  - Heart rate increased [Unknown]
  - Toxicity to various agents [Unknown]
  - Supraventricular extrasystoles [Unknown]
  - Headache [Unknown]
  - Diarrhoea [Unknown]
  - Malaise [Unknown]
